FAERS Safety Report 8054454-2 (Version None)
Quarter: 2012Q1

REPORT INFORMATION
  Report Type: 
  Country: None (occurrence: None)
  Receive Date: 20120118
  Receipt Date: 20120111
  Transmission Date: 20120608
  Serious: Yes (Hospitalization)
  Sender: FDA-Public Use
  Company Number: BR-ASTRAZENECA-2012SE02370

PATIENT
  Age: 24 Year
  Sex: Female

DRUGS (2)
  1. SEROQUEL [Suspect]
     Dosage: 28 TABLETS OF 100 MG AT ONCE
     Route: 048
     Dates: start: 20120107
  2. DIAZEPAM [Suspect]
     Dosage: 4 TABLETS AT ONCE
     Route: 048
     Dates: start: 20120107

REACTIONS (3)
  - SUICIDE ATTEMPT [None]
  - OVERDOSE [None]
  - SOMNOLENCE [None]
